FAERS Safety Report 8025148-4 (Version None)
Quarter: 2012Q1

REPORT INFORMATION
  Report Type: 
  Country: None (occurrence: None)
  Receive Date: 20120105
  Receipt Date: 20100303
  Transmission Date: 20120608
  Serious: Yes (Hospitalization)
  Sender: FDA-Public Use
  Company Number: US-GLAXOSMITHKLINE-A0849018A

PATIENT
  Age: 53 Year
  Sex: Male
  Weight: 79.6 kg

DRUGS (7)
  1. AVANDIA [Suspect]
     Indication: DIABETES MELLITUS
     Dosage: 8MG PER DAY
     Route: 048
     Dates: start: 20020715
  2. GLUCOTROL [Concomitant]
  3. AMARYL [Concomitant]
  4. NADOLOL [Concomitant]
  5. NORVASC [Concomitant]
  6. NORVASC [Concomitant]
  7. CORGARD [Concomitant]

REACTIONS (5)
  - CARDIOVASCULAR DISORDER [None]
  - VENTRICULAR FIBRILLATION [None]
  - CARDIAC ARREST [None]
  - ATRIOVENTRICULAR BLOCK [None]
  - MYOCARDIAL INFARCTION [None]
